FAERS Safety Report 18533703 (Version 1)
Quarter: 2020Q4

REPORT INFORMATION
  Report Type: Spontaneous
  Country: CN (occurrence: CN)
  Receive Date: 20201123
  Receipt Date: 20201123
  Transmission Date: 20210114
  Serious: Yes (Hospitalization)
  Sender: FDA-Public Use
  Company Number: CN-009507513-2010CHN005115

PATIENT
  Age: 52 Year
  Sex: Male
  Weight: 82.5 kg

DRUGS (1)
  1. PEMBROLIZUMAB. [Suspect]
     Active Substance: PEMBROLIZUMAB
     Indication: SMALL CELL LUNG CANCER EXTENSIVE STAGE
     Dosage: 200 MILLIGRAM (ONE DOSE), UNKNOWN
     Route: 042
     Dates: start: 202003

REACTIONS (3)
  - Product use in unapproved indication [Unknown]
  - Radiation pneumonitis [Recovering/Resolving]
  - Recall phenomenon [Recovering/Resolving]

NARRATIVE: CASE EVENT DATE: 2020
